FAERS Safety Report 7937641-0 (Version None)
Quarter: 2011Q4

REPORT INFORMATION
  Report Type: 
  Country: None (occurrence: None)
  Receive Date: 20111123
  Receipt Date: 20111109
  Transmission Date: 20120403
  Serious: Yes (Other)
  Sender: FDA-Public Use
  Company Number: PHHY2011PT66922

PATIENT
  Sex: Male

DRUGS (2)
  1. RASILEZ [Suspect]
  2. ANGIOTENSIN II ANTAGONISTS [Concomitant]
     Dosage: UNK UKN, UNK

REACTIONS (6)
  - WHEEZING [None]
  - LARYNGOSPASM [None]
  - DYSPHAGIA [None]
  - DYSPNOEA [None]
  - BRONCHOSPASM [None]
  - ANGIOEDEMA [None]
